FAERS Safety Report 4395713-4 (Version None)
Quarter: 2004Q3

REPORT INFORMATION
  Report Type: 
  Country: None (occurrence: None)
  Receive Date: 20040707
  Receipt Date: 20040616
  Transmission Date: 20050211
  Serious: Yes (Hospitalization, Other)
  Sender: FDA-Public Use
  Company Number: 200410307BYL

PATIENT
  Age: 76 Year
  Sex: Female
  Weight: 49 kg

DRUGS (10)
  1. ADALAT CC [Suspect]
     Indication: HYPERTENSION
     Dosage: 60 MG, BID,ORAL
     Route: 048
     Dates: end: 20040531
  2. LIPITOR [Suspect]
     Indication: HYPERCHOLESTEROLAEMIA
     Dosage: 10 MG, BID, ORAL
     Route: 048
     Dates: end: 20040603
  3. BEZATOL SR (BEZAFIBRATE) [Suspect]
     Indication: HYPERCHOLESTEROLAEMIA
     Dosage: 200 MG, BID, ORAL
     Route: 048
     Dates: end: 20040531
  4. TENORMIN [Concomitant]
  5. DIGITOXIN TAB [Concomitant]
  6. RYTHMODAN [Concomitant]
  7. ISOSORBIDE MONONITRATE [Concomitant]
  8. 8-HOUR BAYER [Concomitant]
  9. FRANDOL [Concomitant]
  10. JUVELA [Concomitant]

REACTIONS (6)
  - ALANINE AMINOTRANSFERASE INCREASED [None]
  - ASPARTATE AMINOTRANSFERASE INCREASED [None]
  - BRADYARRHYTHMIA [None]
  - HEPATIC FUNCTION ABNORMAL [None]
  - HYPERKALAEMIA [None]
  - RENAL IMPAIRMENT [None]
